FAERS Safety Report 23551141 (Version 1)
Quarter: 2024Q1

REPORT INFORMATION
  Report Type: Spontaneous
  Country: US (occurrence: None)
  Receive Date: 20240222
  Receipt Date: 20240222
  Transmission Date: 20240410
  Serious: Yes (Other)
  Sender: FDA-Public Use
  Company Number: 2024A039402

PATIENT
  Sex: Male

DRUGS (1)
  1. FARXIGA [Suspect]
     Active Substance: DAPAGLIFLOZIN PROPANEDIOL
     Dosage: 5.0MG UNKNOWN
     Route: 048
     Dates: start: 202401, end: 20240205

REACTIONS (7)
  - Loss of consciousness [Unknown]
  - Abdominal pain upper [Unknown]
  - Diarrhoea [Unknown]
  - Urine abnormality [Unknown]
  - Headache [Unknown]
  - Fatigue [Unknown]
  - Intentional product use issue [Unknown]
